FAERS Safety Report 9392984 (Version 1)
Quarter: 2013Q3

REPORT INFORMATION
  Report Type: Spontaneous
  Country: MX (occurrence: None)
  Receive Date: 20130705
  Receipt Date: 20130705
  Transmission Date: 20140515
  Serious: Yes (Hospitalization, Other)
  Sender: FDA-Public Use
  Company Number: ENTC2013-0232

PATIENT
  Age: 80 Year
  Sex: Female

DRUGS (1)
  1. STALEVO [Suspect]
     Indication: PARKINSON^S DISEASE
     Dosage: STRENGTH: 50/12.5/200 MG (1 DOSAGE FORM,1 IN 1 D)
     Route: 048
     Dates: end: 20130415

REACTIONS (3)
  - Syncope [None]
  - Loss of consciousness [None]
  - Fall [None]
